FAERS Safety Report 15808589 (Version 2)
Quarter: 2019Q1

REPORT INFORMATION
  Report Type: Report from Study
  Country: US (occurrence: US)
  Receive Date: 20190110
  Receipt Date: 20190114
  Transmission Date: 20190417
  Serious: No
  Sender: FDA-Public Use
  Company Number: US-SA-2018SA164116

PATIENT
  Age: 46 Year
  Sex: Female

DRUGS (11)
  1. ALPHA LIPOIC ACID [Concomitant]
     Active Substance: .ALPHA.-LIPOIC ACID
  2. PROGESTERONE. [Concomitant]
     Active Substance: PROGESTERONE
  3. VITAMIN D3 [Concomitant]
     Active Substance: CHOLECALCIFEROL
  4. IODINE. [Concomitant]
     Active Substance: IODINE
  5. FISH OIL [Concomitant]
     Active Substance: FISH OIL
  6. LECITHIN [Concomitant]
     Active Substance: LECITHIN
  7. VITAMIN B COMPLEX [Concomitant]
     Active Substance: CYANOCOBALAMIN\DEXPANTHENOL\NIACINAMIDE\PYRIDOXINE HYDROCHLORIDE\RIBOFLAVIN 5^-PHOSPHATE SODIUM\THIAMINE HYDROCHLORIDE\VITAMIN B COMPLEX
  8. TERIFLUNOMIDE. [Suspect]
     Active Substance: TERIFLUNOMIDE
     Indication: MULTIPLE SCLEROSIS
     Dosage: 14 MG, QD
     Route: 048
     Dates: start: 20180525
  9. PROBIOTICS NOS [Concomitant]
     Active Substance: PROBIOTICS NOS
  10. TURMERIC [CURCUMA LONGA] [Concomitant]
  11. NALTREXONE [Concomitant]
     Active Substance: NALTREXONE

REACTIONS (6)
  - Depression [Unknown]
  - Skin lesion [Recovered/Resolved]
  - Vision blurred [Unknown]
  - Lymphadenopathy [Recovered/Resolved]
  - Limb discomfort [Not Recovered/Not Resolved]
  - Nausea [Unknown]

NARRATIVE: CASE EVENT DATE: 201805
